FAERS Safety Report 8532998-4 (Version None)
Quarter: 2012Q3

REPORT INFORMATION
  Report Type: 
  Country: None (occurrence: None)
  Receive Date: 20120724
  Receipt Date: 20120720
  Transmission Date: 20120928
  Serious: Yes (Life-Threatening, Hospitalization)
  Sender: FDA-Public Use
  Company Number: DE-ASTELLAS-2012EU005097

PATIENT
  Age: 58 Year
  Sex: Female
  Weight: 63 kg

DRUGS (7)
  1. PREDNESOL [Concomitant]
     Dosage: UNK
     Dates: start: 20110701, end: 20110703
  2. CYCLOSPORINE [Concomitant]
     Dosage: UNK
     Route: 065
     Dates: start: 20110704
  3. ACYCLOVIR [Concomitant]
     Dosage: UNK
     Route: 065
     Dates: start: 20110704
  4. MICAFUNGIN INJECTION [Suspect]
     Indication: PROPHYLAXIS
     Dosage: 50 MG, UNKNOWN/D
     Route: 065
     Dates: start: 20110704, end: 20110727
  5. DEXAMETHASONE [Concomitant]
     Dosage: UNK
     Route: 065
     Dates: start: 20110629, end: 20110705
  6. ALLOPURINOL [Concomitant]
     Dosage: UNK
     Route: 065
     Dates: start: 20110629, end: 20110704
  7. ONDANSETRON [Concomitant]
     Dosage: UNK
     Route: 065
     Dates: start: 20110629, end: 20110705

REACTIONS (4)
  - MUCOSAL INFLAMMATION [None]
  - BLOOD ALKALINE PHOSPHATASE INCREASED [None]
  - RESPIRATORY FAILURE [None]
  - SEPTIC SHOCK [None]
